FAERS Safety Report 5308534-2 (Version None)
Quarter: 2007Q2

REPORT INFORMATION
  Report Type: 
  Country: None (occurrence: None)
  Receive Date: 20070426
  Receipt Date: 20070417
  Transmission Date: 20071010
  Serious: Yes (Disabling)
  Sender: FDA-Public Use
  Company Number: GBWYE355504APR07

PATIENT
  Sex: Female
  Weight: 86.9 kg

DRUGS (6)
  1. ENBREL [Suspect]
     Indication: DRUG USE FOR UNKNOWN INDICATION
     Route: 058
     Dates: start: 20040510, end: 20050603
  2. ENBREL [Suspect]
     Route: 058
     Dates: start: 20050818, end: 20050905
  3. ENBREL [Suspect]
     Route: 058
     Dates: start: 20060121
  4. ALENDRONATE SODIUM [Concomitant]
     Indication: OSTEOPOROSIS PROPHYLAXIS
     Dosage: 70 MG WEEKLY
     Dates: start: 20011030
  5. CALCIUM PHOSPHATE/CALCIUM SODIUM LACTATE/ERGOCALCIFEROL [Concomitant]
     Indication: OSTEOPOROSIS PROPHYLAXIS
     Route: 048
     Dates: start: 20011030
  6. PREDNISOLONE [Concomitant]
     Indication: RHEUMATOID ARTHRITIS
     Route: 048
     Dates: start: 20011003

REACTIONS (1)
  - CEREBROVASCULAR ACCIDENT [None]
